FAERS Safety Report 4398442-6 (Version None)
Quarter: 2004Q3

REPORT INFORMATION
  Report Type: 
  Country: None (occurrence: None)
  Receive Date: 20040715
  Receipt Date: 20040623
  Transmission Date: 20050211
  Serious: Yes (Other)
  Sender: FDA-Public Use
  Company Number: US-ROCHE-371979

PATIENT
  Age: 28 Year
  Sex: Female
  Weight: 54.4 kg

DRUGS (3)
  1. ACCUTANE [Suspect]
     Route: 048
     Dates: start: 20030215, end: 20030415
  2. ACCUTANE [Suspect]
     Dosage: 2 CAPSULES IN THE MORNING, 1 AT NIGHT.
     Route: 048
     Dates: start: 20021215, end: 20030215
  3. ACCUTANE [Suspect]
     Route: 048
     Dates: start: 20021115, end: 20021215

REACTIONS (1)
  - ACQUIRED NIGHT BLINDNESS [None]
